FAERS Safety Report 10006885 (Version 1)
Quarter: 2014Q1

REPORT INFORMATION
  Report Type: Spontaneous
  Country: US (occurrence: None)
  Receive Date: 20140311
  Receipt Date: 20140311
  Transmission Date: 20141002
  Serious: Yes (Other)
  Sender: FDA-Public Use
  Company Number: 20140098

PATIENT
  Age: 58 Year
  Sex: Female

DRUGS (3)
  1. ATROPINE SULFATE INJECTION, USP (0101-25) 1MG/ML [Suspect]
     Dosage: 0.25 MG IV ATROPINE
     Route: 042
  2. DEFINITY [Suspect]
     Indication: PRODUCT USED FOR UNKNOWN INDICATION
     Dosage: 5 ML (DILUTED)
     Route: 042
  3. DOBUTAMINE [Suspect]
     Indication: PRODUCT USED FOR UNKNOWN INDICATION
     Dosage: UP TO 40 UG/KG PER

REACTIONS (10)
  - Convulsion [None]
  - Sinus bradycardia [None]
  - Electrocardiogram ST-T change [None]
  - QRS axis abnormal [None]
  - Fall [None]
  - Head injury [None]
  - Loss of consciousness [None]
  - Myoclonus [None]
  - Tardive dyskinesia [None]
  - Complex partial seizures [None]
